FAERS Safety Report 10173725 (Version 1)
Quarter: 2014Q2

REPORT INFORMATION
  Report Type: Spontaneous
  Country: FR (occurrence: FR)
  Receive Date: 20140515
  Receipt Date: 20140515
  Transmission Date: 20141212
  Serious: Yes (Life-Threatening, Hospitalization)
  Sender: FDA-Public Use
  Company Number: FR-EISAI INC-E2020-13988-SPO-FR

PATIENT
  Age: 72 Year
  Sex: Female

DRUGS (7)
  1. ARICEPT [Suspect]
     Indication: DEMENTIA
     Route: 048
     Dates: start: 20130219, end: 2013
  2. ARICEPT [Suspect]
     Route: 048
     Dates: start: 2013, end: 20130318
  3. CYMBALTA [Suspect]
     Indication: DEPRESSION
     Dosage: 30 MG/DAY
     Route: 048
     Dates: end: 20130601
  4. AMLOR [Concomitant]
     Dosage: 5 MG/DAY
     Route: 048
  5. FORTZAAR [Concomitant]
     Dosage: 100/25 MG/DAY
     Route: 048
  6. PREVISCAN [Concomitant]
     Dosage: 20 MG/DAY
     Route: 048
  7. TAHOR [Concomitant]
     Dosage: 20 MG/DAY
     Route: 048

REACTIONS (8)
  - Hemianopia [Recovered/Resolved]
  - Hypoaesthesia [Recovered/Resolved]
  - Tremor [Recovered/Resolved]
  - Vomiting [Recovered/Resolved]
  - Hepatitis cholestatic [Recovered/Resolved]
  - Abdominal pain [Recovered/Resolved]
  - Pollakiuria [Unknown]
  - Constipation [Unknown]
